FAERS Safety Report 25313069 (Version 1)
Quarter: 2025Q2

REPORT INFORMATION
  Report Type: Spontaneous
  Country: US (occurrence: None)
  Receive Date: 20250513
  Receipt Date: 20250513
  Transmission Date: 20250717
  Serious: Yes (Hospitalization)
  Sender: FDA-CTU
  Company Number: None

PATIENT
  Age: 81 Year
  Sex: Male

DRUGS (1)
  1. EMPAGLIFLOZIN [Suspect]
     Active Substance: EMPAGLIFLOZIN
     Indication: Diabetes mellitus
     Dosage: FREQUENCY : DAILY;?

REACTIONS (5)
  - Sepsis [None]
  - Urinary tract infection [None]
  - Staphylococcus test positive [None]
  - Enterobacter test positive [None]
  - Klebsiella test positive [None]

NARRATIVE: CASE EVENT DATE: 20241110
